FAERS Safety Report 25335287 (Version 1)
Quarter: 2025Q2

REPORT INFORMATION
  Report Type: Spontaneous
  Country: US (occurrence: US)
  Receive Date: 20250520
  Receipt Date: 20250520
  Transmission Date: 20250716
  Serious: Yes (Hospitalization)
  Sender: ACCORD
  Company Number: US-Accord-485195

PATIENT
  Age: 48 Year
  Sex: Female

DRUGS (2)
  1. ERLOTINIB HYDROCHLORIDE [Suspect]
     Active Substance: ERLOTINIB HYDROCHLORIDE
     Indication: Lung adenocarcinoma stage IV
  2. TRAMADOL [Concomitant]
     Active Substance: TRAMADOL
     Indication: Pain

REACTIONS (4)
  - Treatment failure [Unknown]
  - Drug ineffective [Unknown]
  - Papule [Unknown]
  - Pustule [Unknown]
